FAERS Safety Report 9825474 (Version 2)
Quarter: 2014Q1

REPORT INFORMATION
  Report Type: Spontaneous
  Country: US (occurrence: US)
  Receive Date: 20140117
  Receipt Date: 20140205
  Transmission Date: 20141002
  Serious: No
  Sender: FDA-Public Use
  Company Number: US-PFIZER INC-2014015428

PATIENT
  Age: 48 Year
  Sex: Female
  Weight: 79.37 kg

DRUGS (6)
  1. LYRICA [Suspect]
     Indication: DIABETIC NEUROPATHY
     Dosage: 75 MG, 2X/DAY
     Dates: end: 201311
  2. INSULIN [Concomitant]
     Indication: DIABETES MELLITUS
     Dosage: UNK
  3. TRAMADOL [Concomitant]
     Dosage: 100 MG(2 TABLETS OF 50 MG), 2X/DAY
  4. SIMVASTATIN [Concomitant]
     Dosage: 10 MG, 1X/DAY
  5. CYMBALTA [Concomitant]
     Indication: ANXIETY
     Dosage: 60 MG, 2X/DAY
  6. METHOTREXATE [Concomitant]
     Dosage: 15 MG(SIX TABLETS OF 2.5MG ), WEEKLY

REACTIONS (1)
  - Pain [Not Recovered/Not Resolved]
